FAERS Safety Report 12415098 (Version 1)
Quarter: 2016Q2

REPORT INFORMATION
  Report Type: Spontaneous
  Country: GB (occurrence: GB)
  Receive Date: 20160530
  Receipt Date: 20160530
  Transmission Date: 20160815
  Serious: Yes (Other)
  Sender: FDA-Public Use
  Company Number: GB-009507513-1605GBR010469

PATIENT
  Age: 11 Year
  Sex: Male
  Weight: 21 kg

DRUGS (2)
  1. SINEMET [Suspect]
     Active Substance: CARBIDOPA\LEVODOPA
     Dosage: UNK
     Route: 048
  2. SODIUM FEREDETATE [Interacting]
     Active Substance: SODIUM FEREDETATE
     Indication: IRON DEFICIENCY
     Dosage: 0.25 ML, QD
     Route: 048

REACTIONS (1)
  - Inhibitory drug interaction [Recovered/Resolved]
